FAERS Safety Report 16767074 (Version 2)
Quarter: 2019Q4

REPORT INFORMATION
  Report Type: Spontaneous
  Country: DE (occurrence: DE)
  Receive Date: 20190903
  Receipt Date: 20191219
  Transmission Date: 20200122
  Serious: Yes (Other)
  Sender: FDA-Public Use
  Company Number: DE-MYLANLABS-2019M1081314

PATIENT
  Age: 84 Year
  Sex: Female
  Weight: 59.25 kg

DRUGS (30)
  1. VALSARTAN. [Suspect]
     Active Substance: VALSARTAN
     Dosage: UNK
     Dates: start: 201202, end: 2014
  2. AMLODIPINE [Suspect]
     Active Substance: AMLODIPINE BESYLATE
     Indication: PRODUCT USED FOR UNKNOWN INDICATION
     Dosage: UNK, UNK NON AZ PRODUCT
     Dates: start: 201203, end: 2012
  3. METOPROLOL. [Suspect]
     Active Substance: METOPROLOL
     Indication: PRODUCT USED FOR UNKNOWN INDICATION
     Dosage: UNK
     Route: 048
     Dates: start: 201504, end: 2015
  4. CLINDAMYCIN RATIOPHARM [Suspect]
     Active Substance: CLINDAMYCIN PHOSPHATE
     Indication: PRODUCT USED FOR UNKNOWN INDICATION
     Dosage: UNK
     Dates: start: 201704, end: 2017
  5. IBUFLAM                            /00109201/ [Suspect]
     Active Substance: IBUPROFEN
     Indication: PRODUCT USED FOR UNKNOWN INDICATION
     Dosage: UNK
     Dates: start: 201704, end: 2017
  6. NITROLINGUAL [Suspect]
     Active Substance: NITROGLYCERIN
     Dosage: UNK
     Dates: start: 201203, end: 2017
  7. NOVAMINSULFON LICHTENSTEIN [Suspect]
     Active Substance: METAMIZOLE SODIUM
     Indication: PRODUCT USED FOR UNKNOWN INDICATION
     Dosage: UNK
     Dates: start: 201610, end: 2016
  8. MIRTAZAPINE. [Suspect]
     Active Substance: MIRTAZAPINE
     Indication: PRODUCT USED FOR UNKNOWN INDICATION
     Dosage: UNK
     Dates: start: 201210, end: 2013
  9. BISOPROLOL [Suspect]
     Active Substance: BISOPROLOL
     Indication: PRODUCT USED FOR UNKNOWN INDICATION
     Dosage: UNK
     Dates: start: 201203, end: 2018
  10. BISOPROLOL [Suspect]
     Active Substance: BISOPROLOL
     Dosage: UNK
     Dates: start: 201206, end: 2013
  11. IBUPROFEN AL [Suspect]
     Active Substance: IBUPROFEN
     Indication: PRODUCT USED FOR UNKNOWN INDICATION
     Dosage: UNK
     Dates: start: 201211, end: 2012
  12. NIFEDIPIN AL [Suspect]
     Active Substance: NIFEDIPINE
     Indication: PRODUCT USED FOR UNKNOWN INDICATION
     Dosage: UNK, UNK NON AZ PRODUCT
     Dates: start: 201604, end: 2016
  13. NITROLINGUAL [Suspect]
     Active Substance: NITROGLYCERIN
     Indication: PRODUCT USED FOR UNKNOWN INDICATION
     Dosage: UNK
     Dates: start: 201503, end: 2015
  14. LENDORMIN [Suspect]
     Active Substance: BROTIZOLAM
     Indication: PRODUCT USED FOR UNKNOWN INDICATION
     Dosage: UNK
     Dates: start: 201211, end: 2017
  15. NIFEHEXAL [Suspect]
     Active Substance: NIFEDIPINE
     Indication: PRODUCT USED FOR UNKNOWN INDICATION
     Dosage: UNK
     Dates: start: 201203, end: 2012
  16. VALSARTAN. [Suspect]
     Active Substance: VALSARTAN
     Dosage: UNK
     Dates: start: 201209, end: 2016
  17. VALSARTAN. [Suspect]
     Active Substance: VALSARTAN
     Dosage: UNK
     Dates: start: 201610, end: 2018
  18. BISOHEXAL [Suspect]
     Active Substance: BISOPROLOL FUMARATE
     Dosage: UNK
     Dates: start: 201505, end: 2016
  19. AMLODIPIN STADA                    /00972402/ [Suspect]
     Active Substance: AMLODIPINE BESYLATE
     Indication: PRODUCT USED FOR UNKNOWN INDICATION
     Dosage: UNK
     Dates: start: 201203, end: 2012
  20. BISOPROLOL RATIOPHARM [Suspect]
     Active Substance: BISOPROLOL
     Indication: PRODUCT USED FOR UNKNOWN INDICATION
     Dosage: UNK
     Dates: start: 201206, end: 2013
  21. VALSARTAN. [Suspect]
     Active Substance: VALSARTAN
     Indication: HYPERTENSION
     Dosage: UNK
     Dates: start: 201807, end: 2018
  22. VALSARTAN. [Suspect]
     Active Substance: VALSARTAN
     Dosage: UNK
     Dates: start: 201810
  23. RAMIPRIL HEXAL PLUS AMLODIPIN [Suspect]
     Active Substance: AMLODIPINE\RAMIPRIL
     Indication: PRODUCT USED FOR UNKNOWN INDICATION
     Dosage: UNK
     Dates: start: 201606, end: 2016
  24. IBUFLAM                            /00109201/ [Suspect]
     Active Substance: IBUPROFEN
     Dosage: UNK
     Dates: start: 201211, end: 2012
  25. NIFEDIPIN AL [Suspect]
     Active Substance: NIFEDIPINE
     Dosage: UNK, UNK NON AZ PRODUCT
     Dates: start: 201609, end: 2016
  26. NIFEDIPIN AL [Suspect]
     Active Substance: NIFEDIPINE
     Dosage: UNK
     Dates: start: 201203, end: 2012
  27. BELOC ZOK MITE [Suspect]
     Active Substance: METOPROLOL SUCCINATE
     Indication: PRODUCT USED FOR UNKNOWN INDICATION
     Dosage: UNK
     Dates: start: 201504, end: 2015
  28. BISOHEXAL [Suspect]
     Active Substance: BISOPROLOL FUMARATE
     Indication: PRODUCT USED FOR UNKNOWN INDICATION
     Dosage: UNK
     Dates: start: 201203, end: 2012
  29. BISOHEXAL [Suspect]
     Active Substance: BISOPROLOL FUMARATE
     Dosage: UNK
     Dates: start: 201203, end: 2018
  30. RAMIPRIL. [Suspect]
     Active Substance: RAMIPRIL
     Indication: PRODUCT USED FOR UNKNOWN INDICATION
     Dosage: UNK, UNK NON AZ PRODUCT
     Dates: start: 201606, end: 2016

REACTIONS (5)
  - Chronic kidney disease [Unknown]
  - Hypertension [Unknown]
  - Condition aggravated [Unknown]
  - Normochromic anaemia [Unknown]
  - Carotid artery disease [Unknown]

NARRATIVE: CASE EVENT DATE: 2018
